FAERS Safety Report 12283785 (Version 1)
Quarter: 2016Q2

REPORT INFORMATION
  Report Type: Spontaneous
  Country: US (occurrence: US)
  Receive Date: 20160419
  Receipt Date: 20160419
  Transmission Date: 20160815
  Serious: No
  Sender: FDA-Public Use
  Company Number: US-BANPHARM-20153891

PATIENT
  Age: 77 Year
  Sex: Female
  Weight: 58.06 kg

DRUGS (4)
  1. CENTRUM SILVER [Concomitant]
     Active Substance: MINERALS\VITAMINS
  2. CALTRATE [Concomitant]
     Active Substance: CALCIUM CARBONATE
  3. THYROID MEDICATION [Concomitant]
     Active Substance: UNSPECIFIED INGREDIENT
  4. ALEVE [Suspect]
     Active Substance: NAPROXEN SODIUM
     Indication: ANALGESIC THERAPY
     Dosage: 1 DF, PRN,
     Route: 048
     Dates: start: 2008

REACTIONS (3)
  - Therapeutic response unexpected [Unknown]
  - Drug ineffective [Unknown]
  - Drug effect delayed [Unknown]
